FAERS Safety Report 9534491 (Version 1)
Quarter: 2013Q3

REPORT INFORMATION
  Report Type: Spontaneous
  Country: US (occurrence: US)
  Receive Date: 20130918
  Receipt Date: 20130918
  Transmission Date: 20140515
  Serious: Yes (Hospitalization)
  Sender: FDA-Public Use
  Company Number: US-COVIDIEN/TYCO HEALTHCARE/MALLINCKRODT-T201304285

PATIENT
  Age: 45 Year
  Sex: Male

DRUGS (1)
  1. GABLOFEN [Suspect]
     Indication: MUSCLE SPASTICITY
     Dosage: 785 MCG/DAY
     Route: 037
     Dates: start: 201308

REACTIONS (10)
  - Drug withdrawal syndrome [Recovering/Resolving]
  - Overdose [Recovering/Resolving]
  - Convulsion [Recovering/Resolving]
  - Hallucination [Recovering/Resolving]
  - Agitation [Recovering/Resolving]
  - Fall [Recovering/Resolving]
  - Underdose [Recovering/Resolving]
  - Tachycardia [Recovering/Resolving]
  - Slow speech [Recovering/Resolving]
  - Rash [Recovering/Resolving]
